FAERS Safety Report 8829344 (Version 2)
Quarter: 2014Q3

REPORT INFORMATION
  Report Type: Report from Study
  Country: US (occurrence: US)
  Receive Date: 20121008
  Receipt Date: 20140821
  Transmission Date: 20150326
  Serious: Yes (Other)
  Sender: FDA-Public Use
  Company Number: US-ROCHE-1136082

PATIENT
  Sex: Female

DRUGS (2)
  1. RITUXAN [Suspect]
     Active Substance: RITUXIMAB
     Indication: CHRONIC LYMPHOCYTIC LEUKAEMIA
  2. RITUXAN [Suspect]
     Active Substance: RITUXIMAB
     Indication: PARAPROTEINAEMIA
     Route: 065

REACTIONS (13)
  - Renal failure [Unknown]
  - Gait disturbance [Unknown]
  - Fall [Unknown]
  - Blood test abnormal [Unknown]
  - Migraine [Unknown]
  - Meniere^s disease [Unknown]
  - Hyporeflexia [Unknown]
  - Weight decreased [Unknown]
  - Convulsion [Unknown]
  - Fatigue [Unknown]
  - Pain [Unknown]
  - Thrombocytopenia [Unknown]
  - Anaemia [Unknown]
